FAERS Safety Report 8135265-6 (Version None)
Quarter: 2012Q1

REPORT INFORMATION
  Report Type: 
  Country: None (occurrence: None)
  Receive Date: 20120210
  Receipt Date: 20120202
  Transmission Date: 20120608
  Serious: Yes (Death, Hospitalization)
  Sender: FDA-Public Use
  Company Number: DKLU1068828

PATIENT
  Age: 11 Month
  Sex: Female

DRUGS (5)
  1. BACTRIM (BACTRIM) (TABLET) [Concomitant]
  2. NEOCATE INFT POW DHA/ARA (NEOCATE) [Concomitant]
  3. PREVACID (LANSOPRAZOLE) (TABLET) [Concomitant]
  4. SABRIL [Suspect]
     Indication: INFANTILE SPASMS
     Dosage: 160 MG MILLIGRAM(S), 2 IN 1 D, ORAL 10 ML MILLILITRE(S), ORAL
     Route: 048
     Dates: start: 20101213
  5. KEPPRA (LEVETIRACETAM) (100 MG/ML) [Concomitant]

REACTIONS (4)
  - GASTROINTESTINAL DISORDER [None]
  - APNOEA [None]
  - TREMOR [None]
  - CONVULSION [None]
